FAERS Safety Report 24184361 (Version 2)
Quarter: 2024Q4

REPORT INFORMATION
  Report Type: Report from Study
  Country: US (occurrence: US)
  Receive Date: 20240807
  Receipt Date: 20241005
  Transmission Date: 20250114
  Serious: Yes (Other)
  Sender: NOVARTIS
  Company Number: US-002147023-NVSC2024US081347

PATIENT
  Sex: Female

DRUGS (2)
  1. KESIMPTA [Suspect]
     Active Substance: OFATUMUMAB
     Indication: Multiple sclerosis
     Dosage: 20 MG, QW
     Route: 058
     Dates: start: 20240213
  2. KESIMPTA [Suspect]
     Active Substance: OFATUMUMAB
     Dosage: UNK
     Route: 058

REACTIONS (18)
  - Suicidal ideation [Unknown]
  - Fall [Unknown]
  - Somnolence [Unknown]
  - Dizziness [Recovering/Resolving]
  - Joint injury [Recovering/Resolving]
  - Contusion [Unknown]
  - Haemorrhage [Unknown]
  - Nausea [Unknown]
  - Vomiting [Unknown]
  - Cognitive disorder [Unknown]
  - Weight decreased [Unknown]
  - Memory impairment [Unknown]
  - Injection related reaction [Unknown]
  - Decreased appetite [Unknown]
  - Muscle spasms [Unknown]
  - Vision blurred [Unknown]
  - Amnesia [Unknown]
  - Product administered at inappropriate site [Unknown]
